FAERS Safety Report 14577602 (Version 1)
Quarter: 2018Q1

REPORT INFORMATION
  Report Type: Spontaneous
  Country: US (occurrence: US)
  Receive Date: 20180226
  Receipt Date: 20180226
  Transmission Date: 20180509
  Serious: Yes (Disabling)
  Sender: FDA-Public Use
  Company Number: None

PATIENT
  Age: 66 Year
  Sex: Female
  Weight: 92.25 kg

DRUGS (2)
  1. GADOLINIUM CONTRAST [Suspect]
     Active Substance: GADOLINIUM
     Indication: NUCLEAR MAGNETIC RESONANCE IMAGING
  2. GADOLINIUM CONTRAST [Suspect]
     Active Substance: GADOLINIUM
     Indication: SCAN WITH CONTRAST

REACTIONS (9)
  - Pain [None]
  - Neuropathy peripheral [None]
  - Pain in extremity [None]
  - Bone pain [None]
  - Toxicity to various agents [None]
  - Burning sensation [None]
  - Feeling cold [None]
  - Loss of personal independence in daily activities [None]
  - Pruritus [None]

NARRATIVE: CASE EVENT DATE: 20120505
